FAERS Safety Report 7940823-5 (Version None)
Quarter: 2011Q4

REPORT INFORMATION
  Report Type: 
  Country: None (occurrence: None)
  Receive Date: 20111128
  Receipt Date: 20111123
  Transmission Date: 20120403
  Serious: Yes (Other)
  Sender: FDA-Public Use
  Company Number: CH-PFIZER INC-2011287390

PATIENT
  Age: 85 Year
  Sex: Female
  Weight: 70 kg

DRUGS (10)
  1. ALDACTONE [Suspect]
     Dosage: 25 MG, 1X/DAY
     Route: 048
     Dates: end: 20111012
  2. OXYCODONE HCL [Suspect]
     Dosage: 10 MG, 6X/DAY
     Route: 048
     Dates: start: 20111011, end: 20111013
  3. BACTRIM [Concomitant]
     Dosage: 160 MG, 2X/DAY
     Dates: start: 20111007, end: 20111013
  4. PERINDOPRIL ERBUMINE [Suspect]
     Dosage: 2.5 MG, 1X/DAY
     Route: 048
     Dates: end: 20111013
  5. SINTROM [Concomitant]
     Dosage: UNK
     Route: 048
  6. ESCITALOPRAM [Concomitant]
     Dosage: 10 MG, 1X/DAY
     Route: 048
  7. SEROQUEL [Concomitant]
     Indication: AGITATION
     Dosage: 12.5 MG, 2X/DAY AS NEEDED
     Dates: start: 20111010
  8. TORSEMIDE [Suspect]
     Dosage: 10 MG, 1X/DAY
     Route: 048
     Dates: end: 20111013
  9. METOPROLOL SUCCINATE [Suspect]
     Dosage: 25 MG, 1X/DAY
     Route: 048
     Dates: end: 20111014
  10. DIGOXIN [Concomitant]
     Dosage: 0.125 MG, 5X/WEEK
     Route: 048

REACTIONS (5)
  - RENAL FAILURE ACUTE [None]
  - ACCIDENTAL OVERDOSE [None]
  - HALLUCINATION [None]
  - HYPOTENSION [None]
  - CONFUSIONAL STATE [None]
